FAERS Safety Report 19755756 (Version 13)
Quarter: 2022Q1

REPORT INFORMATION
  Report Type: Report from Study
  Country: None (occurrence: ES)
  Receive Date: 20210827
  Receipt Date: 20220301
  Transmission Date: 20220423
  Serious: Yes (Other)
  Sender: FDA-Public Use
  Company Number: ES-AKCEA THERAPEUTICS, INC.-2021IS001477

PATIENT
  Age: 68 Year
  Sex: Female

DRUGS (8)
  1. TEGSEDI [Suspect]
     Active Substance: INOTERSEN SODIUM
     Indication: Amyloidosis
     Route: 058
  2. DEVICE [Suspect]
     Active Substance: DEVICE
  3. TEGSEDI [Suspect]
     Active Substance: INOTERSEN SODIUM
     Route: 058
     Dates: start: 20210611
  4. PIROXICAM [Concomitant]
     Active Substance: PIROXICAM
  5. LEVOTHYROXINE SODIUM [Concomitant]
     Active Substance: LEVOTHYROXINE SODIUM
     Route: 048
  6. OMEPRAZOLE [Concomitant]
     Active Substance: OMEPRAZOLE
     Route: 048
  7. OLMESARTAN MEDOXOMIL [Concomitant]
     Active Substance: OLMESARTAN MEDOXOMIL
     Route: 048
  8. TEGSEDI [Suspect]
     Active Substance: INOTERSEN SODIUM
     Route: 058

REACTIONS (33)
  - Pain in extremity [Not Recovered/Not Resolved]
  - Depressed mood [Not Recovered/Not Resolved]
  - Feeling cold [Recovering/Resolving]
  - Chills [Unknown]
  - Body temperature increased [Recovered/Resolved]
  - Abdominal pain upper [Recovered/Resolved]
  - Pollakiuria [Recovered/Resolved]
  - Feeling abnormal [Recovered/Resolved]
  - Cough [Unknown]
  - Secretion discharge [Unknown]
  - Aphonia [Unknown]
  - Malaise [Unknown]
  - Nasopharyngitis [Recovered/Resolved]
  - Influenza [Recovered/Resolved]
  - Fatigue [Unknown]
  - Blood creatinine increased [Unknown]
  - Blood lactate dehydrogenase increased [Unknown]
  - Blood potassium increased [Unknown]
  - pH urine increased [Unknown]
  - Protein urine present [Unknown]
  - Red blood cell count decreased [Unknown]
  - Haemoglobin decreased [Unknown]
  - Haematocrit decreased [Unknown]
  - Blood urea abnormal [Unknown]
  - Mean cell haemoglobin concentration abnormal [Not Recovered/Not Resolved]
  - Microalbuminuria [Unknown]
  - Mean cell volume increased [Unknown]
  - Creatinine urine increased [Unknown]
  - Renal function test abnormal [Unknown]
  - Blood creatine phosphokinase increased [Unknown]
  - Urine albumin/creatinine ratio increased [Unknown]
  - Urine protein/creatinine ratio increased [Unknown]
  - Blood bilirubin decreased [Unknown]

NARRATIVE: CASE EVENT DATE: 20210501
